FAERS Safety Report 16982038 (Version 1)
Quarter: 2019Q4

REPORT INFORMATION
  Report Type: Spontaneous
  Country: US (occurrence: US)
  Receive Date: 20191101
  Receipt Date: 20191101
  Transmission Date: 20200122
  Serious: Yes (Other)
  Sender: FDA-Public Use
  Company Number: US-ALKEM LABORATORIES LIMITED-US-ALKEM-2019-09025

PATIENT
  Age: 75 Year
  Sex: Female

DRUGS (2)
  1. LIDOCAINE. [Suspect]
     Active Substance: LIDOCAINE
     Indication: DENTAL OPERATION
     Dosage: 40 MILLIGRAM OF LIGNOCAINE WITH 1:200,000 EPINEPHRINE
     Route: 065
  2. EPINEPHRINE. [Concomitant]
     Active Substance: EPINEPHRINE
     Indication: DENTAL OPERATION
     Dosage: 40 MILLIGRAM OF LIGNOCAINE WITH 1:200,000 EPINEPHRINE
     Route: 065

REACTIONS (9)
  - Toxicity to various agents [Unknown]
  - Chills [Unknown]
  - Vomiting [Unknown]
  - Atrial flutter [Unknown]
  - Mental status changes [Unknown]
  - Tachycardia [Unknown]
  - Hypertension [Unknown]
  - Disorientation [Unknown]
  - Taste disorder [Unknown]
